FAERS Safety Report 20693545 (Version 1)
Quarter: 2022Q2

REPORT INFORMATION
  Report Type: Report from Study
  Country: CA (occurrence: CA)
  Receive Date: 20220411
  Receipt Date: 20220411
  Transmission Date: 20220721
  Serious: Yes (Other)
  Sender: FDA-Public Use
  Company Number: CA-JNJFOC-20220320390

PATIENT
  Age: 11 Year
  Sex: Female

DRUGS (1)
  1. REMICADE [Suspect]
     Active Substance: INFLIXIMAB
     Indication: Colitis ulcerative
     Route: 042

REACTIONS (3)
  - Tonsillectomy [Unknown]
  - Gastric haemorrhage [Unknown]
  - Post procedural infection [Unknown]

NARRATIVE: CASE EVENT DATE: 20220101
